FAERS Safety Report 8523607-9 (Version None)
Quarter: 2012Q3

REPORT INFORMATION
  Report Type: 
  Country: None (occurrence: None)
  Receive Date: 20120720
  Receipt Date: 20120711
  Transmission Date: 20120928
  Serious: Yes (Hospitalization, Other)
  Sender: FDA-Public Use
  Company Number: US-GENZYME-THYM-1003335

PATIENT
  Sex: Male
  Weight: 74.48 kg

DRUGS (17)
  1. COREG [Concomitant]
     Dosage: 25 MG, BID
     Route: 048
     Dates: start: 20120702, end: 20120707
  2. NORVASC [Concomitant]
     Indication: PRODUCT USED FOR UNKNOWN INDICATION
     Dosage: 10 MG, QD
     Route: 048
     Dates: start: 20120702, end: 20120707
  3. PROGRAF [Concomitant]
     Dosage: 1 MG, QD
     Route: 048
     Dates: start: 20120703, end: 20120707
  4. PROGRAF [Concomitant]
     Indication: RENAL TRANSPLANT
     Dosage: 0.5 MG, QD
     Route: 048
     Dates: start: 20120702, end: 20120707
  5. LIPITOR [Concomitant]
     Indication: PRODUCT USED FOR UNKNOWN INDICATION
     Dosage: 10 MG, QD
     Route: 048
  6. CELLCEPT [Concomitant]
     Indication: RENAL TRANSPLANT
     Dosage: 750 MG, QD
     Route: 048
     Dates: start: 20120703, end: 20120707
  7. DELTASONE [Concomitant]
     Indication: PRODUCT USED FOR UNKNOWN INDICATION
     Dosage: 5 MG, QD
     Route: 048
     Dates: start: 20120702, end: 20120707
  8. CATAPRES [Concomitant]
     Indication: PRODUCT USED FOR UNKNOWN INDICATION
     Dosage: 0.1 MG, BID
     Route: 048
  9. CARDURA [Concomitant]
     Dosage: 8 MG, BID
     Route: 048
     Dates: start: 20120702, end: 20120707
  10. ZOCOR [Concomitant]
     Indication: PRODUCT USED FOR UNKNOWN INDICATION
     Dosage: 20 MG, QD
     Route: 048
     Dates: start: 20120702, end: 20120707
  11. CELLCEPT [Concomitant]
     Dosage: 500 MG, QD
     Route: 048
  12. CARDURA [Concomitant]
     Indication: PRODUCT USED FOR UNKNOWN INDICATION
     Dosage: 8 MG, BID
     Route: 048
     Dates: start: 20110610
  13. NEXIUM [Concomitant]
     Indication: PRODUCT USED FOR UNKNOWN INDICATION
     Dosage: 20 MG, QD
     Route: 048
     Dates: start: 20111006
  14. THYMOGLOBULIN [Suspect]
     Indication: TRANSPLANT REJECTION
     Dosage: UNK
     Route: 065
     Dates: start: 20110607, end: 20110617
  15. BETAXOLOL [Concomitant]
     Indication: PRODUCT USED FOR UNKNOWN INDICATION
     Dosage: 1 DROP INTO BOTH EYE, BID
     Route: 047
     Dates: start: 20120702, end: 20120707
  16. COREG [Concomitant]
     Indication: PRODUCT USED FOR UNKNOWN INDICATION
     Dosage: 25 MG, BID
     Route: 048
     Dates: start: 20111006
  17. PROTONIX [Concomitant]
     Indication: PRODUCT USED FOR UNKNOWN INDICATION
     Dosage: 40 MG, QD
     Route: 048
     Dates: start: 20120702, end: 20120707

REACTIONS (9)
  - DEHYDRATION [None]
  - MYALGIA [None]
  - PNEUMONIA [None]
  - PYREXIA [None]
  - ARTHRALGIA [None]
  - RENAL FAILURE ACUTE [None]
  - CHILLS [None]
  - COUGH [None]
  - BRONCHIAL IRRITATION [None]
